FAERS Safety Report 4499621-X (Version None)
Quarter: 2004Q4

REPORT INFORMATION
  Report Type: 
  Country: None (occurrence: None)
  Receive Date: 20041110
  Receipt Date: 20041110
  Transmission Date: 20050328
  Serious: Yes (Disabling)
  Sender: FDA-Public Use
  Company Number: None

PATIENT
  Age: 39 Year
  Sex: Male
  Weight: 127.0072 kg

DRUGS (1)
  1. CIPRO [Suspect]
     Indication: DIVERTICULITIS
     Dosage: 1 PILL  2 TIMES A DAY ORAL
     Route: 048
     Dates: start: 20040520, end: 20040527

REACTIONS (12)
  - ARTHRALGIA [None]
  - DISTURBANCE IN ATTENTION [None]
  - HEADACHE [None]
  - HYPOAESTHESIA [None]
  - INSOMNIA [None]
  - JAW DISORDER [None]
  - MUSCLE TWITCHING [None]
  - PAIN [None]
  - PANIC ATTACK [None]
  - PARAESTHESIA [None]
  - TENDON DISORDER [None]
  - VISION BLURRED [None]
